FAERS Safety Report 6470575-X (Version None)
Quarter: 2009Q4

REPORT INFORMATION
  Report Type: 
  Country: None (occurrence: None)
  Receive Date: 20091203
  Receipt Date: 20090903
  Transmission Date: 20100525
  Serious: No
  Sender: FDA-Public Use
  Company Number: US-ABBOTT-09P-163-0595661-00

PATIENT
  Sex: Female
  Weight: 69.462 kg

DRUGS (1)
  1. REDUCTIL 10MG [Suspect]
     Indication: WEIGHT CONTROL
     Dates: start: 20090824

REACTIONS (1)
  - FATIGUE [None]
